FAERS Safety Report 4328183-2 (Version None)
Quarter: 2004Q1

REPORT INFORMATION
  Report Type: 
  Country: None (occurrence: None)
  Receive Date: 20040331
  Receipt Date: 20040211
  Transmission Date: 20041129
  Serious: Yes (Death)
  Sender: FDA-Public Use
  Company Number: US-GLAXOSMITHKLINE-A0497831A

PATIENT
  Age: 13 Year
  Sex: Male
  Weight: 75.9 kg

DRUGS (1)
  1. PAXIL CR [Suspect]
     Indication: INTERMITTENT EXPLOSIVE DISORDER
     Dosage: 12.5MG PER DAY
     Route: 048
     Dates: start: 20030109, end: 20030325

REACTIONS (8)
  - ABNORMAL BEHAVIOUR [None]
  - ANGER [None]
  - COMPLETED SUICIDE [None]
  - CONJUNCTIVAL HAEMORRHAGE [None]
  - PARENT-CHILD PROBLEM [None]
  - PETECHIAE [None]
  - SKIN DISCOLOURATION [None]
  - SKIN DISORDER [None]
